FAERS Safety Report 4652851-6 (Version None)
Quarter: 2005Q2

REPORT INFORMATION
  Report Type: 
  Country: None (occurrence: None)
  Receive Date: 20050502
  Receipt Date: 20050415
  Transmission Date: 20051028
  Serious: No
  Sender: FDA-Public Use
  Company Number: 10899

PATIENT
  Age: 22 Year
  Sex: Female

DRUGS (1)
  1. METHOTREXATE [Suspect]
     Dosage: 62.5 MG OTH, IT
     Route: 037

REACTIONS (10)
  - BACTERIAL INFECTION [None]
  - BLOOD MAGNESIUM DECREASED [None]
  - BODY TEMPERATURE INCREASED [None]
  - CENTRAL LINE INFECTION [None]
  - CONVERSION DISORDER [None]
  - DISSOCIATION [None]
  - MUTISM [None]
  - NEUROTOXICITY [None]
  - THERAPY NON-RESPONDER [None]
  - TOXIC INDUCED ENCEPHALOPATHY [None]
